FAERS Safety Report 21622827 (Version 3)
Quarter: 2022Q4

REPORT INFORMATION
  Report Type: Spontaneous
  Country: US (occurrence: US)
  Receive Date: 20221121
  Receipt Date: 20221220
  Transmission Date: 20230113
  Serious: No
  Sender: FDA-Public Use
  Company Number: US-ALKERMES INC.-ALK-2022-005576

PATIENT
  Age: 31 Year
  Sex: Female

DRUGS (1)
  1. VIVITROL [Suspect]
     Active Substance: NALTREXONE
     Indication: Drug dependence
     Dosage: 380 MILLIGRAM, Q28D
     Route: 030
     Dates: start: 20221114, end: 20221114

REACTIONS (9)
  - Dysstasia [Unknown]
  - Hypotension [Unknown]
  - Lacrimation increased [Unknown]
  - Mydriasis [Unknown]
  - Hyperhidrosis [Unknown]
  - Nausea [Unknown]
  - Dizziness [Unknown]
  - Abdominal pain [Unknown]
  - Anxiety [Unknown]

NARRATIVE: CASE EVENT DATE: 20221114
